FAERS Safety Report 23957761 (Version 1)
Quarter: 2024Q2

REPORT INFORMATION
  Report Type: Spontaneous
  Country: CA (occurrence: CA)
  Receive Date: 20240610
  Receipt Date: 20240610
  Transmission Date: 20240716
  Serious: Yes (Hospitalization, Other)
  Sender: FDA-Public Use
  Company Number: CA-AMGEN-CANSP2024109869

PATIENT
  Age: 16 Year
  Sex: Male

DRUGS (2)
  1. INFLIXIMAB [Suspect]
     Active Substance: INFLIXIMAB
     Indication: Colitis ulcerative
     Dosage: UNK
     Route: 065
  2. AZATHIOPRINE [Concomitant]
     Active Substance: AZATHIOPRINE
     Indication: Colitis ulcerative
     Dosage: UNK
     Route: 065

REACTIONS (5)
  - Colitis ulcerative [Recovered/Resolved]
  - Haemoglobin decreased [Recovered/Resolved]
  - Loss of therapeutic response [Unknown]
  - Hypertriglyceridaemia [Recovered/Resolved]
  - Blood albumin decreased [Recovered/Resolved]
